FAERS Safety Report 6116307-6 (Version None)
Quarter: 2009Q1

REPORT INFORMATION
  Report Type: 
  Country: None (occurrence: None)
  Receive Date: 20090314
  Receipt Date: 20081208
  Transmission Date: 20090719
  Serious: No
  Sender: FDA-Public Use
  Company Number: US-ABBOTT-08P-163-0491680-00

PATIENT
  Sex: Male

DRUGS (4)
  1. HUMIRA [Suspect]
     Indication: PSORIASIS
     Route: 058
     Dates: start: 20080904
  2. HUMIRA [Suspect]
     Indication: PSORIATIC ARTHROPATHY
  3. VANOS CREAM [Concomitant]
     Indication: PSORIASIS
     Route: 061
  4. TAZORAC GEL [Concomitant]
     Indication: PSORIASIS
     Route: 061

REACTIONS (1)
  - PSORIATIC ARTHROPATHY [None]
